FAERS Safety Report 5616644-5 (Version None)
Quarter: 2008Q1

REPORT INFORMATION
  Report Type: 
  Country: None (occurrence: None)
  Receive Date: 20080207
  Receipt Date: 20071210
  Transmission Date: 20080703
  Serious: No
  Sender: FDA-Public Use
  Company Number: A0698902A

PATIENT

DRUGS (1)
  1. PAXIL CR [Suspect]
     Indication: DEPRESSION
     Dosage: 25MG UNKNOWN
     Route: 048

REACTIONS (1)
  - DRUG INEFFECTIVE [None]
